FAERS Safety Report 8282754-X (Version None)
Quarter: 2012Q2

REPORT INFORMATION
  Report Type: 
  Country: None (occurrence: None)
  Receive Date: 20120410
  Receipt Date: 20120406
  Transmission Date: 20120825
  Serious: Yes (Hospitalization, Other)
  Sender: FDA-Public Use
  Company Number: ADR-2011-10584

PATIENT

DRUGS (1)
  1. LIORESAL [Suspect]
     Indication: MUSCLE SPASTICITY
     Dosage: 849.2 MCG, DAILY, INTRA
     Route: 037

REACTIONS (2)
  - INTRACRANIAL HYPOTENSION [None]
  - IMPLANT SITE EFFUSION [None]
